FAERS Safety Report 6882675-0 (Version None)
Quarter: 2010Q3

REPORT INFORMATION
  Report Type: 
  Country: None (occurrence: None)
  Receive Date: 20100729
  Receipt Date: 20100722
  Transmission Date: 20110219
  Serious: Yes (Hospitalization)
  Sender: FDA-Public Use
  Company Number: US-ROCHE-715190

PATIENT
  Sex: Male
  Weight: 72 kg

DRUGS (9)
  1. BEVACIZUMAB [Suspect]
     Dosage: DATE OF MOST RECENT CYCLE: 18 JUNE 2010
     Route: 042
     Dates: start: 20100618
  2. CARBOPLATIN [Suspect]
     Dosage: DATE OF MOST RECENT CYCLE: 18 JUNE 2010
     Route: 042
     Dates: start: 20100618
  3. PEMETREXED [Suspect]
     Dosage: DATE OF MOST RECENT CYCLE: 18 JUNE 2010
     Route: 042
     Dates: start: 20100618
  4. LISINOPRIL [Concomitant]
     Indication: HYPERTENSION
     Dates: start: 20080601
  5. HYDRALAZINE HCL [Concomitant]
     Indication: HYPERTENSION
     Dates: start: 20080601
  6. LASIX [Concomitant]
     Indication: HYPERTENSION
     Dates: start: 20100518
  7. SIMVASTATIN [Concomitant]
     Dates: start: 20050601
  8. FOLIC ACID [Concomitant]
     Indication: CHEMOTHERAPY
     Dates: start: 20100604
  9. VITAMIN B-12 [Concomitant]
     Indication: CHEMOTHERAPY
     Dates: start: 20100604

REACTIONS (2)
  - ATRIAL FIBRILLATION [None]
  - FATIGUE [None]
